FAERS Safety Report 14074434 (Version 1)
Quarter: 2017Q4

REPORT INFORMATION
  Report Type: Spontaneous
  Country: US (occurrence: None)
  Receive Date: 20171011
  Receipt Date: 20171011
  Transmission Date: 20180321
  Serious: Yes (Hospitalization)
  Sender: FDA-Public Use
  Company Number: None

PATIENT
  Age: 75 Year
  Sex: Female

DRUGS (14)
  1. AMLODIPINE [Concomitant]
     Active Substance: AMLODIPINE BESYLATE
  2. ASPIRIN. [Concomitant]
     Active Substance: ASPIRIN
  3. CAPECITABINE 500MG [Suspect]
     Active Substance: CAPECITABINE
     Indication: COLON CANCER
     Route: 048
     Dates: start: 20150630
  4. AVASTIN [Concomitant]
     Active Substance: BEVACIZUMAB
  5. LIDO/PRILOCN [Concomitant]
  6. POT. PROMETHAZINE [Concomitant]
  7. OXYCODONE [Concomitant]
     Active Substance: OXYCODONE
  8. LOSARTAN. [Concomitant]
     Active Substance: LOSARTAN
  9. METOPROLOL TARTRATE. [Concomitant]
     Active Substance: METOPROLOL TARTRATE
  10. ATORVASTATIN [Concomitant]
     Active Substance: ATORVASTATIN
  11. LORAZEPAM. [Concomitant]
     Active Substance: LORAZEPAM
  12. CLOPIDOGREL [Concomitant]
     Active Substance: CLOPIDOGREL BISULFATE
  13. PANTOPRAZOLE [Concomitant]
     Active Substance: PANTOPRAZOLE
  14. PROCHLORPER [Concomitant]

REACTIONS (1)
  - Myocardial infarction [None]
